FAERS Safety Report 7345145-1 (Version None)
Quarter: 2011Q1

REPORT INFORMATION
  Report Type: 
  Country: None (occurrence: None)
  Receive Date: 20110310
  Receipt Date: 20110217
  Transmission Date: 20110831
  Serious: Yes (Hospitalization, Disabling)
  Sender: FDA-Public Use
  Company Number: JP-BAYER-200910996BYL

PATIENT
  Age: 59 Year
  Sex: Male

DRUGS (11)
  1. BETAFERON [Suspect]
     Indication: MULTIPLE SCLEROSIS
     Route: 058
     Dates: start: 20010101
  2. LOXONIN [Concomitant]
     Route: 048
     Dates: start: 20080801
  3. PREDONINE [Concomitant]
     Route: 048
  4. MUCOSTA [Concomitant]
     Route: 048
  5. VIAGRA [Concomitant]
     Route: 048
     Dates: start: 20080301
  6. BETAFERON [Suspect]
     Route: 058
     Dates: end: 20090527
  7. SELBEX [Concomitant]
     Dosage: 150 MG (DAILY DOSE), TID, ORAL
     Route: 048
  8. PREDONINE [Concomitant]
     Route: 048
  9. PREDONINE [Concomitant]
     Route: 048
  10. AMOBAN [Concomitant]
     Route: 048
     Dates: start: 20070601
  11. GABAPENTIN [Concomitant]
     Dosage: 600 MG (DAILY DOSE), TID, ORAL
     Route: 048
     Dates: start: 20090101

REACTIONS (6)
  - MALAISE [None]
  - PROTEINURIA [None]
  - HYPOPROTEINAEMIA [None]
  - DYSPNOEA EXERTIONAL [None]
  - NEPHROTIC SYNDROME [None]
  - HYPOALBUMINAEMIA [None]
